FAERS Safety Report 6439055-1 (Version None)
Quarter: 2009Q4

REPORT INFORMATION
  Report Type: 
  Country: None (occurrence: None)
  Receive Date: 20091113
  Receipt Date: 20091103
  Transmission Date: 20100525
  Serious: Yes (Hospitalization, Other)
  Sender: FDA-Public Use
  Company Number: DE-ABBOTT-09P-062-0590150-00

PATIENT
  Sex: Female
  Weight: 45 kg

DRUGS (4)
  1. HUMIRA [Suspect]
     Indication: CROHN'S DISEASE
     Route: 058
     Dates: start: 20090312, end: 20090312
  2. HUMIRA [Suspect]
     Route: 058
     Dates: start: 20090301, end: 20090301
  3. HUMIRA [Suspect]
     Route: 058
     Dates: end: 20090403
  4. OMEPRAZOLE [Concomitant]
     Indication: PROPHYLAXIS AGAINST GASTROINTESTINAL ULCER
     Dates: start: 20090529

REACTIONS (1)
  - THYROID CANCER [None]
